FAERS Safety Report 17166319 (Version 1)
Quarter: 2019Q4

REPORT INFORMATION
  Report Type: Spontaneous
  Country: US (occurrence: US)
  Receive Date: 20191217
  Receipt Date: 20191217
  Transmission Date: 20200122
  Serious: Yes (Other)
  Sender: FDA-Public Use
  Company Number: US-LUNDBECK-DKLU3008950

PATIENT
  Age: 11 Year
  Sex: Female

DRUGS (4)
  1. SABRIL [Suspect]
     Active Substance: VIGABATRIN
     Indication: FOCAL DYSCOGNITIVE SEIZURES
  2. SABRIL [Suspect]
     Active Substance: VIGABATRIN
     Indication: EPILEPSY
  3. SABRIL [Suspect]
     Active Substance: VIGABATRIN
     Indication: PARTIAL SEIZURES
     Route: 048
     Dates: start: 201302
  4. SABRIL [Suspect]
     Active Substance: VIGABATRIN
     Indication: STATUS EPILEPTICUS

REACTIONS (3)
  - Seizure [Unknown]
  - Incorrect dose administered [Unknown]
  - Product dose omission [Unknown]

NARRATIVE: CASE EVENT DATE: 20191209
